FAERS Safety Report 4645950-6 (Version None)
Quarter: 2005Q2

REPORT INFORMATION
  Report Type: 
  Country: None (occurrence: None)
  Receive Date: 20050425
  Receipt Date: 20050411
  Transmission Date: 20051028
  Serious: Yes (Other)
  Sender: FDA-Public Use
  Company Number: CA-2005-002842

PATIENT
  Age: 49 Year
  Sex: Female

DRUGS (3)
  1. MIRENA [Suspect]
     Indication: MENORRHAGIA
     Dosage: 20 UG;DAY, CONT, ITNRA-UTERINE
     Route: 015
     Dates: start: 20041201
  2. COUMADIN [Concomitant]
  3. ZINTROMAX ^PFIZER^ (AZITHROMYCIN) [Concomitant]

REACTIONS (5)
  - INTERNATIONAL NORMALISED RATIO DECREASED [None]
  - METRORRHAGIA [None]
  - OLIGOMENORRHOEA [None]
  - PHLEBITIS [None]
  - WEIGHT INCREASED [None]
